FAERS Safety Report 4623470-2 (Version None)
Quarter: 2005Q1

REPORT INFORMATION
  Report Type: 
  Country: None (occurrence: None)
  Receive Date: 20050330
  Receipt Date: 20050316
  Transmission Date: 20050727
  Serious: Yes (Hospitalization)
  Sender: FDA-Public Use
  Company Number: 2005-BP-04414RO

PATIENT
  Age: 59 Year
  Sex: Male

DRUGS (3)
  1. LEUCOVORIN CALCIUM [Suspect]
     Indication: RECTAL CANCER METASTATIC
     Dosage: 75 MG/D (5 DAYS ON, 2 DAYS OFF), PO
     Route: 048
     Dates: start: 20040112, end: 20040617
  2. UFT [Suspect]
     Indication: RECTAL CANCER METASTATIC
     Dosage: SEE IMAGE
     Route: 048
     Dates: start: 20040112, end: 20040521
  3. UFT [Suspect]
     Indication: RECTAL CANCER METASTATIC
     Dosage: SEE IMAGE
     Route: 048
     Dates: start: 20040521, end: 20040630

REACTIONS (3)
  - BLOOD BILIRUBIN INCREASED [None]
  - DECREASED APPETITE [None]
  - METASTASES TO LIVER [None]
